FAERS Safety Report 18432097 (Version 1)
Quarter: 2020Q4

REPORT INFORMATION
  Report Type: Spontaneous
  Country: GB (occurrence: GB)
  Receive Date: 20201027
  Receipt Date: 20201027
  Transmission Date: 20210114
  Serious: Yes (Hospitalization)
  Sender: FDA-Public Use
  Company Number: GB-MYLANLABS-2017M1053335

PATIENT
  Age: 46 Year
  Sex: Female

DRUGS (1)
  1. CLOZARIL [Suspect]
     Active Substance: CLOZAPINE
     Indication: SCHIZOPHRENIA
     Dosage: UNK
     Route: 048
     Dates: start: 20061207, end: 20180825

REACTIONS (4)
  - White blood cell count increased [Unknown]
  - Hospitalisation [Unknown]
  - Lymphocyte count increased [Unknown]
  - Weight increased [Unknown]

NARRATIVE: CASE EVENT DATE: 20170822
